FAERS Safety Report 25051521 (Version 6)
Quarter: 2025Q2

REPORT INFORMATION
  Report Type: Spontaneous
  Country: CO (occurrence: CO)
  Receive Date: 20250307
  Receipt Date: 20250513
  Transmission Date: 20250717
  Serious: No
  Sender: PFIZER
  Company Number: CO-PFIZER INC-PV202500025700

PATIENT
  Age: 14 Year
  Sex: Male

DRUGS (1)
  1. GENOTROPIN [Suspect]
     Active Substance: SOMATROPIN
     Dates: start: 2022

REACTIONS (2)
  - Drug dose omission by device [Unknown]
  - Device delivery system issue [Unknown]

NARRATIVE: CASE EVENT DATE: 20250228
